FAERS Safety Report 21243703 (Version 3)
Quarter: 2022Q4

REPORT INFORMATION
  Report Type: Report from Study
  Country: GR (occurrence: GR)
  Receive Date: 20220823
  Receipt Date: 20221017
  Transmission Date: 20230113
  Serious: Yes (Hospitalization)
  Sender: FDA-Public Use
  Company Number: GR-ROCHE-2574534

PATIENT
  Age: 69 Year
  Sex: Female
  Weight: 98 kg

DRUGS (31)
  1. DOCETAXEL [Suspect]
     Active Substance: DOCETAXEL
     Indication: HER2 positive breast cancer
     Dosage: 75 MG/KG, EVERY 3 WEEKS
     Route: 042
     Dates: start: 20161018
  2. DOCETAXEL [Suspect]
     Active Substance: DOCETAXEL
     Dosage: 160 MG, EVERY 3 WEEKS (MOST RECENT DOSE PRIOR TO THE EVENT: 17/NOV/2016)
     Route: 042
     Dates: start: 20161025, end: 20161025
  3. TRASTUZUMAB [Suspect]
     Active Substance: TRASTUZUMAB
     Indication: HER2 positive breast cancer
     Dosage: 8 MG/KG, EVERY 3 WEEKS
     Route: 042
     Dates: start: 20161018
  4. TRASTUZUMAB [Suspect]
     Active Substance: TRASTUZUMAB
     Dosage: 780 MG, EVERY 3 WEEKS, (MOST RECENT DOSE PRIOR TO THE EVENT:17/NOV/2016 AND 10/MAY/2019)
     Route: 042
     Dates: start: 20161025, end: 20190510
  5. TRASTUZUMAB [Suspect]
     Active Substance: TRASTUZUMAB
     Dosage: 570 MG, EVERY 3 WEEKS
     Route: 048
     Dates: start: 20161117, end: 20170705
  6. PERTUZUMAB [Suspect]
     Active Substance: PERTUZUMAB
     Indication: HER2 positive breast cancer
     Dosage: 840 MG/KG, EVERY 3 WEEKS
     Route: 042
     Dates: start: 20161018
  7. PERTUZUMAB [Suspect]
     Active Substance: PERTUZUMAB
     Dosage: 840 MG/KG, EVERY 3 WEEKS, (MOST RECENT DOSE PRIOR TO THE EVENT:12/DEC/2016)
     Route: 042
     Dates: start: 20161117, end: 20161117
  8. GEMCITABINE [Suspect]
     Active Substance: GEMCITABINE
     Indication: HER2 positive breast cancer
     Dosage: 2000 MG
     Route: 048
     Dates: start: 20190510, end: 20190703
  9. GEMCITABINE [Suspect]
     Active Substance: GEMCITABINE
     Dosage: 1500 MG
     Route: 048
     Dates: start: 20190724, end: 20190821
  10. GEMCITABINE [Suspect]
     Active Substance: GEMCITABINE
     Dosage: 750 MG (D1,D8)
     Route: 042
     Dates: start: 20190828, end: 20190828
  11. ADO-TRASTUZUMAB EMTANSINE [Suspect]
     Active Substance: ADO-TRASTUZUMAB EMTANSINE
     Indication: HER2 positive breast cancer
     Dosage: 270 MG, EVERY 3 WEEKS
     Route: 048
     Dates: start: 20170726, end: 20180504
  12. LAPATINIB [Suspect]
     Active Substance: LAPATINIB
     Indication: HER2 positive breast cancer
     Dosage: 1250 MG, 1X/DAY
     Route: 042
     Dates: start: 20180611
  13. LAPATINIB [Suspect]
     Active Substance: LAPATINIB
     Dosage: 1000 MG, 1X/DAY
     Route: 048
     Dates: start: 20180723, end: 20181113
  14. LAPATINIB [Suspect]
     Active Substance: LAPATINIB
     Dosage: 750 MG, 1X/DAY
     Route: 048
     Dates: start: 20181114, end: 20190503
  15. LAPATINIB [Suspect]
     Active Substance: LAPATINIB
     Dosage: 1250 MG, 1X/DAY (MOST RECENT DOSE PRIOR TO THE EVENT: 14/NOV/2018)
     Route: 048
     Dates: start: 20180618, end: 20180709
  16. CAPECITABINE [Suspect]
     Active Substance: CAPECITABINE
     Indication: HER2 positive breast cancer
     Dosage: 2000 MG, 2X/DAY (MOST RECENT DOSE PRIOR TO THE EVENT ON 22/OCT/2018)
     Route: 042
     Dates: start: 20180618, end: 20180709
  17. CAPECITABINE [Suspect]
     Active Substance: CAPECITABINE
     Dosage: 1500 MG, 2X/DAY
     Route: 042
     Dates: start: 20180723, end: 20181012
  18. CAPECITABINE [Suspect]
     Active Substance: CAPECITABINE
     Dosage: 1000 MG, 2X/DAY (MOST RECENT DOSE PRIOR TO THE EVENT ON 22/OCT/2018)
     Route: 042
     Dates: start: 20181022, end: 20190102
  19. STABILANOL [Concomitant]
     Indication: Onychomycosis
     Dosage: UNK
     Dates: start: 20171218, end: 20180106
  20. STABILANOL [Concomitant]
     Dosage: UNK
     Dates: start: 20180205, end: 20180224
  21. FENTANYL [Concomitant]
     Active Substance: FENTANYL
     Dosage: UNK
     Dates: start: 20161015
  22. CIPROFLOXACIN [Concomitant]
     Active Substance: CIPROFLOXACIN
     Indication: Pyrexia
     Dosage: UNK
     Dates: start: 20190503, end: 20190510
  23. CIPROFLOXACIN [Concomitant]
     Active Substance: CIPROFLOXACIN
     Dosage: UNK
     Dates: start: 20190705, end: 20190709
  24. LEVOTHYROXINE [Concomitant]
     Active Substance: LEVOTHYROXINE
     Dosage: UNK
     Dates: start: 20090615
  25. LEVOTHYROXINE [Concomitant]
     Active Substance: LEVOTHYROXINE
     Dosage: UNK
     Dates: start: 20090615
  26. VANCOMYCIN HYDROCHLORIDE [Concomitant]
     Active Substance: VANCOMYCIN HYDROCHLORIDE
     Dosage: UNK
     Dates: start: 20190706, end: 20190709
  27. CALCIUM CARBONATE\CHOLECALCIFEROL [Concomitant]
     Active Substance: CALCIUM CARBONATE\CHOLECALCIFEROL
     Dosage: UNK
     Dates: start: 20171218, end: 20190605
  28. LOSEC [Concomitant]
     Active Substance: OMEPRAZOLE
     Dosage: UNK
     Dates: start: 20190703, end: 20190709
  29. ZOMETA [Concomitant]
     Active Substance: ZOLEDRONIC ACID
     Dosage: UNK
     Dates: start: 20161018, end: 20190605
  30. BILARGEN [Concomitant]
     Indication: Rash
     Dosage: UNK
     Dates: start: 20180601, end: 20180625
  31. ACETAMINOPHEN\CODEINE PHOSPHATE [Concomitant]
     Active Substance: ACETAMINOPHEN\CODEINE PHOSPHATE
     Dosage: UNK

REACTIONS (3)
  - Device related infection [Recovered/Resolved]
  - Peripheral sensory neuropathy [Recovered/Resolved]
  - Platelet count decreased [Recovered/Resolved]

NARRATIVE: CASE EVENT DATE: 20170517
